FAERS Safety Report 8570747-4 (Version None)
Quarter: 2012Q3

REPORT INFORMATION
  Report Type: 
  Country: None (occurrence: None)
  Receive Date: 20120805
  Receipt Date: 20120726
  Transmission Date: 20120928
  Serious: No
  Sender: FDA-Public Use
  Company Number: US-ASTRAZENECA-2012SE53515

PATIENT
  Age: 73 Year
  Sex: Female

DRUGS (2)
  1. NEXIUM [Suspect]
     Route: 048
  2. ACIPHEX [Suspect]
     Route: 065

REACTIONS (4)
  - DIABETES MELLITUS [None]
  - DRUG DOSE OMISSION [None]
  - GASTROOESOPHAGEAL REFLUX DISEASE [None]
  - BLOOD CHOLESTEROL INCREASED [None]
